FAERS Safety Report 22389782 (Version 1)
Quarter: 2023Q2

REPORT INFORMATION
  Report Type: Spontaneous
  Country: US (occurrence: US)
  Receive Date: 20230531
  Receipt Date: 20230531
  Transmission Date: 20230722
  Serious: Yes (Life-Threatening, Hospitalization, Other)
  Sender: FDA-Public Use
  Company Number: US-PFIZER INC-202300202752

PATIENT
  Age: 54 Year
  Sex: Male

DRUGS (7)
  1. CLINDAMYCIN PHOSPHATE [Suspect]
     Active Substance: CLINDAMYCIN PHOSPHATE
     Indication: Clostridial infection
     Dosage: UNK
  2. METRONIDAZOLE [Suspect]
     Active Substance: METRONIDAZOLE
     Indication: Intestinal perforation
     Dosage: UNK
  3. METRONIDAZOLE [Suspect]
     Active Substance: METRONIDAZOLE
     Indication: Liver abscess
  4. ERTAPENEM [Suspect]
     Active Substance: ERTAPENEM
     Indication: Intestinal perforation
     Dosage: UNK
  5. ERTAPENEM [Suspect]
     Active Substance: ERTAPENEM
     Indication: Liver abscess
  6. MICAFUNGIN [Suspect]
     Active Substance: MICAFUNGIN SODIUM
     Indication: Intestinal perforation
     Dosage: UNK
  7. MICAFUNGIN [Suspect]
     Active Substance: MICAFUNGIN SODIUM
     Indication: Liver abscess

REACTIONS (1)
  - Drug ineffective [Unknown]
